FAERS Safety Report 6740547-6 (Version None)
Quarter: 2010Q2

REPORT INFORMATION
  Report Type: 
  Country: None (occurrence: None)
  Receive Date: 20100520
  Receipt Date: 20100310
  Transmission Date: 20101027
  Serious: Yes (Other)
  Sender: FDA-Public Use
  Company Number: 2010031282

PATIENT
  Age: 27 Year
  Sex: Female
  Weight: 89.3 kg

DRUGS (5)
  1. DEPO-PROVERA [Suspect]
     Indication: OFF LABEL USE
     Dosage: 150 MG, EVERY 12 WEEKS, INTRAMUSCULAR
     Route: 030
  2. PROTONIX [Concomitant]
  3. ZOLOFT [Concomitant]
  4. RITALIN [Concomitant]
  5. TRAZODONE HCL [Concomitant]

REACTIONS (7)
  - ACNE [None]
  - BREAST PAIN [None]
  - HORMONE LEVEL ABNORMAL [None]
  - HOT FLUSH [None]
  - MENSTRUATION DELAYED [None]
  - NIGHT SWEATS [None]
  - WEIGHT INCREASED [None]
